FAERS Safety Report 8107752-8 (Version None)
Quarter: 2012Q1

REPORT INFORMATION
  Report Type: 
  Country: None (occurrence: None)
  Receive Date: 20120202
  Receipt Date: 20120123
  Transmission Date: 20120608
  Serious: Yes (Hospitalization)
  Sender: FDA-Public Use
  Company Number: JP-JNJFOC-20091205386

PATIENT
  Sex: Female
  Weight: 29.1 kg

DRUGS (14)
  1. REMICADE [Suspect]
     Indication: CROHN'S DISEASE
     Route: 042
     Dates: start: 20081016
  2. REMICADE [Suspect]
     Route: 042
     Dates: start: 20081211
  3. REMICADE [Suspect]
     Dosage: TOTAL # OF INFUSIONS = 10
     Route: 042
     Dates: start: 20080709
  4. PENTASA [Concomitant]
     Indication: CROHN'S DISEASE
     Route: 048
     Dates: start: 20080520
  5. BIO-THREE [Concomitant]
     Indication: CROHN'S DISEASE
     Route: 048
     Dates: start: 20080520
  6. REMICADE [Suspect]
     Route: 042
     Dates: start: 20080723
  7. REMICADE [Suspect]
     Route: 042
  8. REMICADE [Suspect]
     Route: 042
     Dates: start: 20090605
  9. REMICADE [Suspect]
     Route: 042
     Dates: start: 20090918
  10. REMICADE [Suspect]
     Route: 042
     Dates: start: 20090410
  11. REMICADE [Suspect]
     Route: 042
     Dates: start: 20090727
  12. ELENTAL [Concomitant]
     Indication: CROHN'S DISEASE
     Route: 048
     Dates: start: 20080520
  13. REMICADE [Suspect]
     Route: 042
     Dates: start: 20080821
  14. REMICADE [Suspect]
     Route: 042
     Dates: start: 20090206

REACTIONS (6)
  - DIARRHOEA [None]
  - CHILLS [None]
  - ALOPECIA [None]
  - FEELING ABNORMAL [None]
  - SAPHO SYNDROME [None]
  - DECREASED APPETITE [None]
